FAERS Safety Report 10393000 (Version 1)
Quarter: 2014Q3

REPORT INFORMATION
  Report Type: Spontaneous
  Country: CA (occurrence: None)
  Receive Date: 20140815
  Receipt Date: 20140815
  Transmission Date: 20150326
  Serious: Yes (Death, Hospitalization, Other)
  Sender: FDA-Public Use
  Company Number: SYM-2014-24119

PATIENT
  Age: 62 Year
  Sex: Female

DRUGS (8)
  1. CASPOFUNGIN (CASPOFUNGIN) [Concomitant]
  2. EPIRUBICIN [Suspect]
     Active Substance: EPIRUBICIN
     Indication: BREAST CANCER
     Dates: start: 20110722
  3. CYCLOPHOSPHAMIDE. [Suspect]
     Active Substance: CYCLOPHOSPHAMIDE
     Indication: BREAST CANCER
     Dates: start: 20110722
  4. DOCETAXEL [Suspect]
     Active Substance: DOCETAXEL
     Indication: BREAST CANCER
     Route: 042
     Dates: start: 20110930
  5. VANCOMYCIN (VANCOMYCIN) [Concomitant]
     Active Substance: VANCOMYCIN
  6. MEROPENEM (MEROPENEM) [Concomitant]
     Active Substance: MEROPENEM
  7. GRANULOCYTE COLONY STIMULATING FACTOR (GRANULOCYTE COLONY STIMULATING FACTOR) [Concomitant]
     Active Substance: FILGRASTIM
  8. FLUOROURACIL. [Suspect]
     Active Substance: FLUOROURACIL
     Indication: BREAST CANCER
     Dates: start: 20110722

REACTIONS (13)
  - Abscess [None]
  - Renal failure [None]
  - Gastric perforation [None]
  - Clostridium difficile sepsis [None]
  - Large intestine perforation [None]
  - Ischaemic enteritis [None]
  - Gastrointestinal inflammation [None]
  - Febrile neutropenia [None]
  - Gas gangrene [None]
  - Gastritis [None]
  - Peritonitis [None]
  - Gastrointestinal necrosis [None]
  - Sepsis [None]
